FAERS Safety Report 4957446-2 (Version None)
Quarter: 2006Q1

REPORT INFORMATION
  Report Type: 
  Country: None (occurrence: None)
  Receive Date: 20060327
  Receipt Date: 20060216
  Transmission Date: 20060701
  Serious: Yes (Other)
  Sender: FDA-Public Use
  Company Number: SE-2006-006456

PATIENT
  Age: 50 Year
  Sex: Female
  Weight: 54 kg

DRUGS (2)
  1. BETAFERON (INTERFERON BETA - 1B) INJECTION, 250UG [Suspect]
     Indication: MULTIPLE SCLEROSIS
     Dosage: EVERY 2D, SUBCUTANEOUS
     Route: 058
     Dates: start: 19990201
  2. NASONEX [Suspect]
     Indication: MUCOUS MEMBRANE DISORDER
     Dosage: 200 UG, 1X/DAY, NASAL
     Route: 045
     Dates: start: 20050901, end: 20060109

REACTIONS (8)
  - AGEUSIA [None]
  - ANOSMIA [None]
  - EXTRASYSTOLES [None]
  - GLOSSODYNIA [None]
  - OEDEMA PERIPHERAL [None]
  - ORAL FUNGAL INFECTION [None]
  - PAROSMIA [None]
  - SYNCOPE [None]
